FAERS Safety Report 11173826 (Version 2)
Quarter: 2015Q2

REPORT INFORMATION
  Report Type: Spontaneous
  Country: US (occurrence: None)
  Receive Date: 20150605
  Receipt Date: 20150617
  Transmission Date: 20150821
  Serious: Yes (Hospitalization, Other)
  Sender: FDA-Public Use
  Company Number: ADR-2015-01082

PATIENT
  Age: 23 Year
  Sex: Male

DRUGS (1)
  1. LIORESAL [Suspect]
     Active Substance: BACLOFEN
     Indication: MUSCLE SPASTICITY
     Dosage: 550 MCG/DAY; SEE B5

REACTIONS (8)
  - Purulent discharge [None]
  - Device related infection [None]
  - Staphylococcal infection [None]
  - Computerised tomogram abnormal [None]
  - Staphylococcus test positive [None]
  - Implant site extravasation [None]
  - Procedural complication [None]
  - Implant site infection [None]

NARRATIVE: CASE EVENT DATE: 20150417
